FAERS Safety Report 9615926 (Version 1)
Quarter: 2013Q4

REPORT INFORMATION
  Report Type: Spontaneous
  Country: JP (occurrence: JP)
  Receive Date: 20131011
  Receipt Date: 20131011
  Transmission Date: 20140711
  Serious: Yes (Other)
  Sender: FDA-Public Use
  Company Number: JP-PFIZER INC-2013290914

PATIENT
  Sex: Male

DRUGS (1)
  1. SELARA [Suspect]

REACTIONS (1)
  - Heart rate decreased [Unknown]
